FAERS Safety Report 5241450-3 (Version None)
Quarter: 2007Q1

REPORT INFORMATION
  Report Type: 
  Country: None (occurrence: None)
  Receive Date: 20070220
  Receipt Date: 20070213
  Transmission Date: 20070707
  Serious: Yes (Death, Hospitalization)
  Sender: FDA-Public Use
  Company Number: FR-AVENTIS-200710514FR

PATIENT
  Age: 80 Year
  Sex: Female

DRUGS (4)
  1. LOVENOX [Suspect]
     Route: 058
     Dates: start: 20061218, end: 20061218
  2. PLAVIX [Suspect]
     Route: 048
     Dates: start: 20061218, end: 20061218
  3. PREVISCAN                          /00789001/ [Suspect]
     Route: 048
     Dates: start: 19950101, end: 20061215
  4. TARDYFERON                         /00023503/ [Concomitant]
     Route: 048
     Dates: start: 20050401

REACTIONS (4)
  - ANAEMIA [None]
  - CARDIAC FAILURE [None]
  - MUSCLE HAEMORRHAGE [None]
  - RENAL FAILURE ACUTE [None]
